FAERS Safety Report 7419498-X (Version None)
Quarter: 2011Q1

REPORT INFORMATION
  Report Type: 
  Country: None (occurrence: None)
  Receive Date: 20110302
  Receipt Date: 20101029
  Transmission Date: 20110831
  Serious: No
  Sender: FDA-Public Use
  Company Number: 021335

PATIENT
  Sex: Female
  Weight: 60 kg

DRUGS (18)
  1. DESVENLAFAXIN [Concomitant]
  2. PROBIOTICA [Concomitant]
  3. PERCOCET [Concomitant]
  4. PREDNISONE [Concomitant]
  5. FLAGYL [Concomitant]
  6. PANTOPRAZOLE [Concomitant]
  7. OXYCODONE [Concomitant]
  8. CALCIUM CARBONATE [Concomitant]
  9. ONDANSETRON [Concomitant]
  10. LORAZEPAM [Concomitant]
  11. AMBIEN [Concomitant]
  12. CALCIUM [Concomitant]
  13. FLUCONAZOLE [Concomitant]
  14. THYROID TAB [Concomitant]
  15. CIMZIA [Suspect]
     Indication: CROHN'S DISEASE
     Dosage: (400 MG 1X/2 WEEKS SUBCUTANEOUS)
     Route: 058
     Dates: start: 20100101
  16. CIPRO [Concomitant]
  17. TRAZODONE HCL [Concomitant]
  18. VITAMIN D [Concomitant]

REACTIONS (3)
  - INJECTION SITE SWELLING [None]
  - FUNGAL INFECTION [None]
  - INJECTION SITE DISCOLOURATION [None]
